FAERS Safety Report 15695169 (Version 1)
Quarter: 2018Q4

REPORT INFORMATION
  Report Type: Report from Study
  Country: None (occurrence: US)
  Receive Date: 20181206
  Receipt Date: 20181206
  Transmission Date: 20190205
  Serious: Yes (Hospitalization)
  Sender: FDA-Public Use
  Company Number: US-ABBVIE-18S-163-2576584-00

PATIENT
  Sex: Female

DRUGS (1)
  1. SYNTHROID [Suspect]
     Active Substance: LEVOTHYROXINE SODIUM
     Indication: HYPOTHYROIDISM
     Route: 048
     Dates: start: 1984

REACTIONS (4)
  - Complex regional pain syndrome [Not Recovered/Not Resolved]
  - Road traffic accident [Recovered/Resolved]
  - Complex regional pain syndrome [Not Recovered/Not Resolved]
  - Limb crushing injury [Unknown]

NARRATIVE: CASE EVENT DATE: 2009
